FAERS Safety Report 11202383 (Version 1)
Quarter: 2015Q2

REPORT INFORMATION
  Report Type: Spontaneous
  Country: US (occurrence: None)
  Receive Date: 20150617
  Receipt Date: 20150617
  Transmission Date: 20150821
  Serious: Yes (Other)
  Sender: FDA-Public Use
  Company Number: None

PATIENT
  Age: 67 Year
  Sex: Male

DRUGS (1)
  1. LURASIDONE [Suspect]
     Active Substance: LURASIDONE
     Indication: DEPRESSION
     Route: 048
     Dates: start: 20130514, end: 20130612

REACTIONS (4)
  - Fatigue [None]
  - Nausea [None]
  - Sedation [None]
  - Vomiting [None]

NARRATIVE: CASE EVENT DATE: 20130610
